FAERS Safety Report 14770259 (Version 2)
Quarter: 2020Q3

REPORT INFORMATION
  Report Type: Report from Study
  Country: AU (occurrence: AU)
  Receive Date: 20180417
  Receipt Date: 20180515
  Transmission Date: 20201104
  Serious: Yes (Hospitalization)
  Sender: FDA-Public Use
  Company Number: AU-JNJFOC-20180105076

PATIENT
  Age: 72 Year
  Sex: Female
  Weight: 65 kg

DRUGS (35)
  1. VYTORIN [Concomitant]
     Active Substance: EZETIMIBE\SIMVASTATIN
     Indication: HYPERCHOLESTEROLAEMIA
     Dosage: DOSE: 10/80 MG
     Route: 048
     Dates: start: 2001
  2. XALACOM [Concomitant]
     Active Substance: LATANOPROST\TIMOLOL MALEATE
     Indication: GLAUCOMA
     Route: 047
     Dates: start: 20160524
  3. FILGRASTIM [Concomitant]
     Active Substance: FILGRASTIM
     Indication: NEUTROPENIA
     Route: 058
     Dates: start: 20161130
  4. IMODIUM [Concomitant]
     Active Substance: LOPERAMIDE HYDROCHLORIDE
     Indication: DIARRHOEA
     Route: 048
     Dates: start: 20170226
  5. MELOXCAM [Concomitant]
     Active Substance: MELOXICAM
     Indication: BACK PAIN
     Route: 048
     Dates: start: 20171219
  6. AUGMENTIN?DUO [Concomitant]
     Active Substance: AMOXICILLIN\CLAVULANATE POTASSIUM
     Indication: CHOLECYSTITIS ACUTE
     Route: 048
     Dates: start: 20171229
  7. SERTRALINE [Concomitant]
     Active Substance: SERTRALINE HYDROCHLORIDE
     Indication: DEPRESSION
     Route: 048
     Dates: start: 2015
  8. SOMAC [Concomitant]
     Active Substance: PANTOPRAZOLE SODIUM
     Indication: GASTROOESOPHAGEAL REFLUX DISEASE
     Route: 048
     Dates: start: 2001
  9. METRONIDAZOLE. [Concomitant]
     Active Substance: METRONIDAZOLE
     Indication: PROPHYLAXIS
     Route: 048
     Dates: start: 20170804
  10. CALCIUM CARBONATE W/VITAMIN D NOS [Concomitant]
     Active Substance: CALCIUM CARBONATE\VITAMIN D
     Indication: PROPHYLAXIS
     Route: 048
     Dates: start: 201708
  11. THIAMINE. [Concomitant]
     Active Substance: THIAMINE
     Indication: DECREASED APPETITE
     Route: 048
     Dates: start: 20180104
  12. VALSARTAN. [Concomitant]
     Active Substance: VALSARTAN
     Indication: HYPERTENSION
     Route: 048
     Dates: start: 20160505
  13. CETRIZINE [Concomitant]
     Active Substance: CETIRIZINE HYDROCHLORIDE
     Indication: PRURITUS
     Route: 048
     Dates: start: 20160628
  14. ASPIRIN. [Concomitant]
     Active Substance: ASPIRIN
     Indication: THROMBOSIS PROPHYLAXIS
     Route: 048
     Dates: start: 20161220
  15. CHLORVESCENT [Concomitant]
     Active Substance: POTASSIUM CHLORIDE
     Indication: HYPOKALAEMIA
     Route: 048
     Dates: start: 20170302
  16. CALCIUM CARBONATE W/VITAMIN D NOS [Concomitant]
     Active Substance: CALCIUM CARBONATE\VITAMIN D
     Indication: HYPOCALCAEMIA
     Route: 048
     Dates: start: 201708
  17. PARACETAMOL [Concomitant]
     Active Substance: ACETAMINOPHEN
     Indication: CHEST PAIN
     Route: 048
     Dates: start: 20171028
  18. LENALIDOMIDE [Suspect]
     Active Substance: LENALIDOMIDE
     Indication: PLASMA CELL MYELOMA
     Dosage: FREQUENCY: D1?21
     Route: 048
     Dates: start: 20160419, end: 20180103
  19. THYROXINE [Concomitant]
     Active Substance: LEVOTHYROXINE
     Indication: HYPOTHYROIDISM
     Route: 048
     Dates: start: 2013
  20. PANAMAX [Concomitant]
     Active Substance: ACETAMINOPHEN
     Indication: ARTHRALGIA
     Route: 048
     Dates: start: 2015
  21. AUGMENTIN?DUO [Concomitant]
     Active Substance: AMOXICILLIN\CLAVULANATE POTASSIUM
     Indication: UPPER RESPIRATORY TRACT INFECTION
     Route: 048
     Dates: start: 20170523
  22. DEXAMETHASONE. [Concomitant]
     Active Substance: DEXAMETHASONE
     Indication: PLASMA CELL MYELOMA
     Route: 048
     Dates: start: 20170419, end: 20171227
  23. BETAMETHASONE DIPROPIONATE. [Concomitant]
     Active Substance: BETAMETHASONE DIPROPIONATE
     Indication: PRURITUS
     Dosage: DOSE: 0.5
     Route: 061
     Dates: start: 20160531
  24. BACTRIM [Concomitant]
     Active Substance: SULFAMETHOXAZOLE\TRIMETHOPRIM
     Indication: PROPHYLAXIS
     Route: 048
     Dates: start: 20160506
  25. AUGMENTIN?DUO [Concomitant]
     Active Substance: AMOXICILLIN\CLAVULANATE POTASSIUM
     Indication: CHOLECYSTITIS ACUTE
     Route: 048
     Dates: start: 20170523
  26. ENDONE [Concomitant]
     Active Substance: OXYCODONE HYDROCHLORIDE
     Indication: CHEST PAIN
     Route: 048
     Dates: start: 20171028
  27. DARATUMUMAB [Suspect]
     Active Substance: DARATUMUMAB
     Route: 042
  28. PANAMAX [Concomitant]
     Active Substance: ACETAMINOPHEN
     Indication: ARTHRALGIA
     Route: 048
     Dates: start: 2015
  29. MAGMIN [Concomitant]
     Active Substance: MAGNESIUM ASPARTATE
     Indication: HYPOMAGNESAEMIA
     Route: 048
     Dates: start: 20160510
  30. MAXOLON [Concomitant]
     Active Substance: METOCLOPRAMIDE HYDROCHLORIDE
     Indication: NAUSEA
     Route: 048
     Dates: start: 20160629
  31. LORATADINE. [Concomitant]
     Active Substance: LORATADINE
     Indication: PRURITUS
     Route: 048
     Dates: start: 20160607
  32. AUGMENTIN?DUO [Concomitant]
     Active Substance: AMOXICILLIN\CLAVULANATE POTASSIUM
     Indication: UPPER RESPIRATORY TRACT INFECTION
     Route: 048
     Dates: start: 20171229
  33. DARATUMUMAB [Suspect]
     Active Substance: DARATUMUMAB
     Indication: PLASMA CELL MYELOMA
     Route: 042
     Dates: start: 20160419
  34. DEXAMETHASONE. [Concomitant]
     Active Substance: DEXAMETHASONE
     Indication: PLASMA CELL MYELOMA
     Dosage: DOSE: 40 (UNIT UNSPECIFIED)
     Route: 042
     Dates: start: 20160419
  35. DIABEX [Concomitant]
     Active Substance: METFORMIN HYDROCHLORIDE
     Indication: TYPE 2 DIABETES MELLITUS
     Route: 048
     Dates: start: 2013

REACTIONS (1)
  - Diarrhoea [Recovered/Resolved]

NARRATIVE: CASE EVENT DATE: 201712
